FAERS Safety Report 8142766-3 (Version None)
Quarter: 2012Q1

REPORT INFORMATION
  Report Type: 
  Country: None (occurrence: None)
  Receive Date: 20120216
  Receipt Date: 20120208
  Transmission Date: 20120608
  Serious: Yes (Other)
  Sender: FDA-Public Use
  Company Number: US-ASTRAZENECA-2012SE08802

PATIENT
  Age: 56 Year
  Sex: Female

DRUGS (2)
  1. SEROQUEL [Suspect]
     Indication: PERSONALITY DISORDER
     Route: 048
  2. SEROQUEL [Suspect]
     Indication: BIPOLAR DISORDER
     Route: 048

REACTIONS (11)
  - DRUG WITHDRAWAL SYNDROME [None]
  - CRYING [None]
  - TREMOR [None]
  - SUICIDAL IDEATION [None]
  - BIPOLAR DISORDER [None]
  - OFF LABEL USE [None]
  - NERVOUSNESS [None]
  - VOMITING [None]
  - DRUG DOSE OMISSION [None]
  - CONFUSIONAL STATE [None]
  - DYSPHEMIA [None]
